FAERS Safety Report 9685454 (Version 1)
Quarter: 2013Q4

REPORT INFORMATION
  Report Type: Spontaneous
  Country: GB (occurrence: GB)
  Receive Date: 20131113
  Receipt Date: 20131113
  Transmission Date: 20140711
  Serious: Yes (Other)
  Sender: FDA-Public Use
  Company Number: GB-ASTELLAS-2013EU009724

PATIENT
  Sex: Female

DRUGS (1)
  1. VESICARE [Suspect]
     Indication: UTERINE PROLAPSE
     Dosage: UNK
     Route: 065
     Dates: start: 20131029, end: 20131101

REACTIONS (2)
  - Off label use [Unknown]
  - Pain [Recovering/Resolving]
